FAERS Safety Report 8296548-2 (Version None)
Quarter: 2012Q2

REPORT INFORMATION
  Report Type: 
  Country: None (occurrence: None)
  Receive Date: 20120418
  Receipt Date: 20120412
  Transmission Date: 20120825
  Serious: Yes (Hospitalization)
  Sender: FDA-Public Use
  Company Number: US-B.I. PHARMACEUTICALS,INC./RIDGEFIELD-2012-BP-06960BP

PATIENT
  Sex: Female

DRUGS (3)
  1. VERAPAMIL [Concomitant]
     Indication: HEART RATE INCREASED
     Dosage: 360 MG
     Route: 048
     Dates: start: 19970101
  2. MICARDIS HCT [Suspect]
     Indication: HYPERTENSION
     Route: 048
     Dates: start: 20020101
  3. ALPRAZOLAM [Concomitant]
     Indication: ANXIETY
     Dosage: 0.5 MG
     Route: 048
     Dates: start: 20020101

REACTIONS (9)
  - MOOD ALTERED [None]
  - BRONCHITIS [None]
  - LARYNGITIS [None]
  - ARTHRALGIA [None]
  - OSTEOARTHRITIS [None]
  - SENSATION OF FOREIGN BODY [None]
  - THYROID CANCER [None]
  - HYPERTENSION [None]
  - LYMPHADENOPATHY [None]
